FAERS Safety Report 5233875-7 (Version None)
Quarter: 2007Q1

REPORT INFORMATION
  Report Type: 
  Country: None (occurrence: None)
  Receive Date: 20070208
  Receipt Date: 20070131
  Transmission Date: 20070707
  Serious: Yes (Hospitalization)
  Sender: FDA-Public Use
  Company Number: HQWYE046831JAN07

PATIENT
  Age: 86 Year
  Sex: Female

DRUGS (10)
  1. CORDARONE [Suspect]
     Route: 048
     Dates: start: 20050515, end: 20061030
  2. CORDARONE [Suspect]
     Route: 048
     Dates: start: 20061101
  3. AMLOR [Concomitant]
     Route: 048
     Dates: start: 20050101
  4. FUROSEMIDE [Concomitant]
     Route: 048
     Dates: start: 20050501
  5. DIFFU K [Concomitant]
     Dosage: UNSPECIFIED
     Route: 048
     Dates: start: 20050101
  6. OMEPRAZOLE [Concomitant]
     Route: 048
     Dates: start: 20050101
  7. ZOPICLONE [Concomitant]
     Dosage: 0.5 UNIT, FREQUENCY UNSPECIFIED
     Dates: end: 20061030
  8. PREVISCAN [Concomitant]
     Dosage: UNSPECIFIED
     Dates: start: 20050101
  9. ARICEPT [Suspect]
     Route: 048
     Dates: start: 20041015, end: 20061030
  10. BUFLOMEDIL [Concomitant]
     Route: 048
     Dates: start: 20050501, end: 20061030

REACTIONS (3)
  - BRADYCARDIA [None]
  - FALL [None]
  - HAEMATOMA [None]
